FAERS Safety Report 24935963 (Version 1)
Quarter: 2025Q1

REPORT INFORMATION
  Report Type: Report from Study
  Country: US (occurrence: US)
  Receive Date: 20250206
  Receipt Date: 20250206
  Transmission Date: 20250409
  Serious: Yes (Other)
  Sender: EXELIXIS
  Company Number: US-EXELIXIS-EXL-2024-000891

PATIENT
  Age: 54 Year
  Sex: Female

DRUGS (7)
  1. CABOMETYX [Suspect]
     Active Substance: CABOZANTINIB S-MALATE
     Indication: Cervix carcinoma
     Dates: start: 20240912
  2. EVEROLIMUS [Suspect]
     Active Substance: EVEROLIMUS
     Indication: Cervix carcinoma
  3. MODAFINIL [Concomitant]
     Active Substance: MODAFINIL
  4. PREDNISONE [Concomitant]
     Active Substance: PREDNISONE
  5. ARMOUR THYROID [Concomitant]
     Active Substance: THYROID, PORCINE
  6. FUROSEMIDE [Concomitant]
     Active Substance: FUROSEMIDE
  7. UNSPECIFIED INGREDIENT [Concomitant]
     Active Substance: UNSPECIFIED INGREDIENT

REACTIONS (12)
  - Malignant neoplasm progression [Unknown]
  - Alopecia [Unknown]
  - Fatigue [Unknown]
  - Dry skin [Unknown]
  - Pain in extremity [Unknown]
  - Muscle spasms [Unknown]
  - Tongue discomfort [Unknown]
  - Acne [Unknown]
  - Contusion [Unknown]
  - Tongue disorder [Unknown]
  - Inappropriate schedule of product administration [Unknown]
  - Off label use [Unknown]

NARRATIVE: CASE EVENT DATE: 20240912
